FAERS Safety Report 18281513 (Version 6)
Quarter: 2021Q1

REPORT INFORMATION
  Report Type: Spontaneous
  Country: US (occurrence: US)
  Receive Date: 20200918
  Receipt Date: 20210302
  Transmission Date: 20210419
  Serious: Yes (Congenital Anomaly, Other)
  Sender: FDA-Public Use
  Company Number: NVSC2020US254166

PATIENT
  Sex: Female

DRUGS (1)
  1. ZOFRAN [Suspect]
     Active Substance: ONDANSETRON HYDROCHLORIDE
     Indication: FOETAL EXPOSURE DURING PREGNANCY
     Dosage: MOTHER DOSE: 04 MG, Q6H
     Route: 064

REACTIONS (34)
  - Dacryostenosis congenital [Unknown]
  - Respiratory distress [Unknown]
  - Foetal exposure during pregnancy [Unknown]
  - Pain [Unknown]
  - Metabolic acidosis [Unknown]
  - Cardiac murmur [Unknown]
  - Dyspnoea [Unknown]
  - Gastrooesophageal reflux disease [Unknown]
  - Abdominal distension [Unknown]
  - Aphthous ulcer [Unknown]
  - Tachypnoea [Unknown]
  - Congenital anomaly [Unknown]
  - Emotional distress [Unknown]
  - Pleural effusion [Unknown]
  - Asthenia [Unknown]
  - Behaviour disorder [Unknown]
  - Constipation [Unknown]
  - Sepsis [Unknown]
  - Deformity [Unknown]
  - Selective eating disorder [Unknown]
  - Left-to-right cardiac shunt [Unknown]
  - Patent ductus arteriosus [Unknown]
  - Apnoea [Unknown]
  - Bradycardia [Unknown]
  - Pneumonia [Unknown]
  - Injury [Unknown]
  - Agitation [Unknown]
  - Anhedonia [Unknown]
  - Hyperbilirubinaemia neonatal [Unknown]
  - Cardiomegaly [Unknown]
  - Atrial septal defect [Unknown]
  - Neonatal infection [Unknown]
  - Vomiting [Unknown]
  - Dermatitis diaper [Unknown]
